FAERS Safety Report 4912496-7 (Version None)
Quarter: 2006Q1

REPORT INFORMATION
  Report Type: 
  Country: None (occurrence: None)
  Receive Date: 20060215
  Receipt Date: 20050517
  Transmission Date: 20060701
  Serious: No
  Sender: FDA-Public Use
  Company Number: US-GLAXOSMITHKLINE-A0559384A

PATIENT
  Age: 77 Year
  Sex: Female
  Weight: 63.6 kg

DRUGS (2)
  1. VALTREX [Suspect]
     Indication: EYE INFECTION
     Dosage: 1CAP TWICE PER DAY
     Route: 048
  2. PRED FORTE [Concomitant]
     Dosage: 1DROP PER DAY
     Route: 047
     Dates: start: 20050401

REACTIONS (3)
  - ERYTHEMA [None]
  - NAIL DISORDER [None]
  - SKIN DISCOLOURATION [None]
